FAERS Safety Report 9410050 (Version 5)
Quarter: 2013Q4

REPORT INFORMATION
  Report Type: Report from Study
  Country: US (occurrence: US)
  Receive Date: 20130719
  Receipt Date: 20131022
  Transmission Date: 20140711
  Serious: Yes (Hospitalization)
  Sender: FDA-Public Use
  Company Number: US-ROCHE-1249577

PATIENT
  Age: 8 Year
  Sex: Male
  Weight: 20.75 kg

DRUGS (3)
  1. NUTROPIN AQ [Suspect]
     Indication: GROWTH RETARDATION
     Dosage: FORM STRENGTH: 5 MG/ML
     Route: 058
     Dates: start: 20130426, end: 20130507
  2. NUTROPIN AQ [Suspect]
     Indication: FAILURE TO THRIVE
     Route: 058
     Dates: start: 201305, end: 20130530
  3. NUTROPIN AQ [Suspect]
     Route: 058
     Dates: end: 201307

REACTIONS (5)
  - Migraine [Recovering/Resolving]
  - Vomiting [Recovering/Resolving]
  - Benign intracranial hypertension [Unknown]
  - Lung disorder [Unknown]
  - Headache [Recovered/Resolved]
